FAERS Safety Report 10652248 (Version 2)
Quarter: 2015Q1

REPORT INFORMATION
  Report Type: Spontaneous
  Country: US (occurrence: US)
  Receive Date: 20141215
  Receipt Date: 20150204
  Transmission Date: 20150720
  Serious: No
  Sender: FDA-Public Use
  Company Number: US-009507513-1411USA012686

PATIENT
  Age: 16 Year
  Sex: Female
  Weight: 121.54 kg

DRUGS (2)
  1. SYNTHROID [Concomitant]
     Active Substance: LEVOTHYROXINE SODIUM
     Dosage: UNK
  2. NEXPLANON [Suspect]
     Active Substance: ETONOGESTREL
     Indication: CONTRACEPTION
     Dosage: UNK
     Route: 059
     Dates: start: 20130211, end: 20141125

REACTIONS (3)
  - Device kink [Recovered/Resolved]
  - Weight increased [Recovering/Resolving]
  - Vaginal haemorrhage [Recovering/Resolving]
